FAERS Safety Report 10522074 (Version 2)
Quarter: 2014Q4

REPORT INFORMATION
  Report Type: Spontaneous
  Country: US (occurrence: US)
  Receive Date: 20141016
  Receipt Date: 20141219
  Transmission Date: 20150528
  Serious: No
  Sender: FDA-Public Use
  Company Number: US-PFIZER INC-2014283629

PATIENT
  Age: 66 Year
  Sex: Male
  Weight: 72.56 kg

DRUGS (2)
  1. AMLODIPINE BESILATE [Suspect]
     Active Substance: AMLODIPINE BESYLATE
     Dosage: 5 MG, UNK
  2. ALFUZOSIN [Concomitant]
     Active Substance: ALFUZOSIN
     Indication: PROSTATIC DISORDER
     Dosage: 10 MG, 1X/DAY

REACTIONS (2)
  - Product quality issue [Unknown]
  - Headache [Unknown]

NARRATIVE: CASE EVENT DATE: 201409
